FAERS Safety Report 23660497 (Version 2)
Quarter: 2024Q2

REPORT INFORMATION
  Report Type: Report from Study
  Country: CO (occurrence: CO)
  Receive Date: 20240322
  Receipt Date: 20240412
  Transmission Date: 20240716
  Serious: Yes (Hospitalization, Other)
  Sender: FDA-Public Use
  Company Number: CO-ABBVIE-5687661

PATIENT
  Age: 64 Year
  Sex: Male

DRUGS (1)
  1. SKYRIZI [Suspect]
     Active Substance: RISANKIZUMAB-RZAA
     Indication: Psoriasis
     Dosage: FORM STRENGTH 150 MILLIGRAM
     Route: 058
     Dates: start: 20201127, end: 20231219

REACTIONS (8)
  - Dyspnoea [Recovering/Resolving]
  - Loss of personal independence in daily activities [Unknown]
  - Cardiomegaly [Not Recovered/Not Resolved]
  - Carditis [Not Recovered/Not Resolved]
  - General physical health deterioration [Unknown]
  - Lung disorder [Recovering/Resolving]
  - Hypertension [Recovered/Resolved]
  - Asphyxia [Unknown]

NARRATIVE: CASE EVENT DATE: 20240101
